FAERS Safety Report 4286803-5 (Version None)
Quarter: 2004Q1

REPORT INFORMATION
  Report Type: 
  Country: None (occurrence: None)
  Receive Date: 20040206
  Receipt Date: 20040112
  Transmission Date: 20041129
  Serious: Yes (Death)
  Sender: FDA-Public Use
  Company Number: US-ROCHE-356011

PATIENT
  Age: 21 Year
  Sex: Female
  Weight: 35.8 kg

DRUGS (1)
  1. XELODA [Suspect]
     Indication: HEPATIC CANCER METASTATIC
     Route: 065

REACTIONS (1)
  - UROSEPSIS [None]
